FAERS Safety Report 7535676-3 (Version None)
Quarter: 2011Q2

REPORT INFORMATION
  Report Type: 
  Country: None (occurrence: None)
  Receive Date: 20110609
  Receipt Date: 20110601
  Transmission Date: 20111010
  Serious: Yes (Hospitalization)
  Sender: FDA-Public Use
  Company Number: US-US-EMD SERONO, INC.-7063086

PATIENT
  Sex: Male

DRUGS (21)
  1. NOVANTRONE [Suspect]
     Indication: ACUTE MYELOID LEUKAEMIA
  2. CEFTAZIDIME [Concomitant]
  3. PAROXETINE HCL [Concomitant]
     Dates: start: 20110201
  4. TERAZOSIN HCL [Concomitant]
  5. SODIUM CHLORIDE [Concomitant]
  6. FLUCONAZOLE [Concomitant]
     Dates: start: 20110201, end: 20110503
  7. URSODIOL [Concomitant]
     Dates: start: 20110306
  8. CYTARABINE [Suspect]
  9. POTASSIUM CHLORIDE [Concomitant]
  10. OXYCODONE HCL [Concomitant]
  11. ACYCLOVIR [Concomitant]
     Dates: start: 20110201
  12. DAPSONE [Concomitant]
     Dates: start: 20110209
  13. OMEPRAZOLE [Concomitant]
     Dates: start: 20110201
  14. SIMVASTATIN [Concomitant]
     Dates: start: 20110201
  15. CIPROFLOXACIN [Concomitant]
     Dates: start: 20110312
  16. MAGNESIUM SULFATE [Concomitant]
  17. MDX-1338 [Suspect]
     Indication: ACUTE MYELOID LEUKAEMIA
     Dates: start: 20110321, end: 20110412
  18. ETOPOSIDE [Suspect]
  19. VANCOMYCIN [Concomitant]
  20. MULTIVITAMIN WITH MINERALS [Concomitant]
  21. ERTAPENEM [Concomitant]
     Dates: start: 20110416

REACTIONS (6)
  - MENTAL STATUS CHANGES [None]
  - FEBRILE NEUTROPENIA [None]
  - FALL [None]
  - VOMITING [None]
  - NAUSEA [None]
  - HYPOPHAGIA [None]
